FAERS Safety Report 5191009-1 (Version None)
Quarter: 2006Q4

REPORT INFORMATION
  Report Type: 
  Country: None (occurrence: None)
  Receive Date: 20061214
  Receipt Date: 20061208
  Transmission Date: 20070319
  Serious: Yes (Hospitalization, Other)
  Sender: FDA-Public Use
  Company Number: HQWYE728108DEC06

PATIENT
  Age: 81 Year
  Sex: Male

DRUGS (4)
  1. CORDARONE [Suspect]
     Dosage: 200 MG TABLET, DOSE UNSPECIFIED; ORAL
     Route: 048
  2. EUCALCIC               (CALCIUM CARBONATE, ) [Suspect]
     Dosage: 1.2 G TABLET, DOSE UNSPECIFIED; ORAL
     Route: 048
  3. PREVISCAN             (FLUINDOINE ) [Suspect]
     Dosage: 20 MG TABLET, DOSE UNSPECIFIED; ORAL
     Route: 048
  4. RENAGEL (SEVELAMER, ) [Suspect]
     Dosage: 800 MG TABLET, DOSE UNSPECIFIED; ORAL
     Route: 048

REACTIONS (3)
  - COAGULATION TIME SHORTENED [None]
  - DRUG RESISTANCE [None]
  - INTERNATIONAL NORMALISED RATIO INCREASED [None]
